FAERS Safety Report 6210093-7 (Version None)
Quarter: 2009Q2

REPORT INFORMATION
  Report Type: 
  Country: None (occurrence: None)
  Receive Date: 20090601
  Receipt Date: 20090521
  Transmission Date: 20091009
  Serious: Yes (Death)
  Sender: FDA-Public Use
  Company Number: GB-JNJFOC-20090505883

PATIENT
  Age: 63 Year
  Sex: Female

DRUGS (2)
  1. REMICADE [Suspect]
     Indication: PYODERMA GANGRENOSUM
     Route: 042
  2. PREDNISOLONE [Concomitant]

REACTIONS (2)
  - GASTROINTESTINAL CARCINOMA [None]
  - METASTASES TO LIVER [None]
